FAERS Safety Report 6262222-7 (Version None)
Quarter: 2009Q3

REPORT INFORMATION
  Report Type: 
  Country: None (occurrence: None)
  Receive Date: 20090708
  Receipt Date: 20090708
  Transmission Date: 20100115
  Serious: Yes (Other)
  Sender: FDA-Public Use
  Company Number: None

PATIENT
  Age: 52 Year
  Sex: Female
  Weight: 86.1834 kg

DRUGS (1)
  1. ZICAM ALLERGY RELIEF GEL SWABS GEL SWABS ZICAM [Suspect]
     Indication: MULTIPLE ALLERGIES
     Dosage: ZICAM 2 PER DAY SWABS
     Dates: start: 20090501, end: 20090601

REACTIONS (3)
  - AGEUSIA [None]
  - ANOSMIA [None]
  - PRODUCT QUALITY ISSUE [None]
